FAERS Safety Report 9929974 (Version 2)
Quarter: 2014Q1

REPORT INFORMATION
  Report Type: Spontaneous
  Country: US (occurrence: US)
  Receive Date: 20140227
  Receipt Date: 20140227
  Transmission Date: 20141002
  Serious: Yes (Disabling)
  Sender: FDA-Public Use
  Company Number: US-GE HEALTHCARE MEDICAL DIAGNOSTICS-OSCN-PR-0804S-0197

PATIENT
  Age: 46 Year
  Sex: Female

DRUGS (1)
  1. OMNISCAN [Suspect]
     Indication: TRANSPLANT EVALUATION
     Route: 042
     Dates: start: 20051207, end: 20051207

REACTIONS (1)
  - Nephrogenic systemic fibrosis [Not Recovered/Not Resolved]
